FAERS Safety Report 7919104-1 (Version None)
Quarter: 2011Q4

REPORT INFORMATION
  Report Type: 
  Country: None (occurrence: None)
  Receive Date: 20111116
  Receipt Date: 20091226
  Transmission Date: 20120403
  Serious: Yes (Other)
  Sender: FDA-Public Use
  Company Number: PHHY2009TW61042

PATIENT
  Sex: Female

DRUGS (1)
  1. GLEEVEC [Suspect]
     Indication: GASTROINTESTINAL STROMAL TUMOUR
     Dosage: 400 MG, UNK
     Route: 048
     Dates: start: 20091024

REACTIONS (23)
  - HYPERSENSITIVITY [None]
  - MOOD ALTERED [None]
  - POOR QUALITY SLEEP [None]
  - FACE OEDEMA [None]
  - LYMPHATIC DISORDER [None]
  - MUSCLE SPASMS [None]
  - EYELID OEDEMA [None]
  - HEADACHE [None]
  - RASH [None]
  - GASTROINTESTINAL STROMAL TUMOUR [None]
  - FAECES DISCOLOURED [None]
  - DEPRESSION [None]
  - CONJUNCTIVAL HAEMORRHAGE [None]
  - SUICIDAL IDEATION [None]
  - EAR PAIN [None]
  - MALAISE [None]
  - ABDOMINAL PAIN UPPER [None]
  - NEOPLASM MALIGNANT [None]
  - OEDEMA PERIPHERAL [None]
  - BREATH ODOUR [None]
  - BLISTER [None]
  - FATIGUE [None]
  - OEDEMA [None]
